FAERS Safety Report 23317839 (Version 1)
Quarter: 2023Q4

REPORT INFORMATION
  Report Type: Spontaneous
  Country: US (occurrence: None)
  Receive Date: 20231219
  Receipt Date: 20231219
  Transmission Date: 20240110
  Serious: No
  Sender: FDA-Public Use
  Company Number: US-ROCHE-3392146

PATIENT
  Age: 80 Year
  Sex: Male

DRUGS (1)
  1. GAZYVA [Suspect]
     Active Substance: OBINUTUZUMAB
     Indication: Product used for unknown indication
     Dosage: TAM STATED THE PATIENT RECEIVED THE 100 MG DAY 1 DOSE FOR CHRONIC?LYMPHOCYTIC LEUKEMIA
     Route: 042
     Dates: start: 20230717

REACTIONS (1)
  - Confusional state [Recovered/Resolved]
